FAERS Safety Report 4982615-5 (Version None)
Quarter: 2006Q2

REPORT INFORMATION
  Report Type: 
  Country: None (occurrence: None)
  Receive Date: 20060419
  Receipt Date: 20060406
  Transmission Date: 20061013
  Serious: Yes (Hospitalization)
  Sender: FDA-Public Use
  Company Number: 200512521BWH

PATIENT
  Age: 62 Year
  Sex: Female
  Weight: 41.5041 kg

DRUGS (35)
  1. SORAFENIB [Suspect]
     Indication: METASTATIC RENAL CELL CARCINOMA
     Dosage: SEE IMAGE
     Route: 048
     Dates: start: 20051101, end: 20051108
  2. SORAFENIB [Suspect]
     Indication: METASTATIC RENAL CELL CARCINOMA
     Dosage: SEE IMAGE
     Route: 048
     Dates: start: 20051114, end: 20051119
  3. HYDROCODONE [Concomitant]
  4. ATIVAN [Concomitant]
  5. COMPAZINE [Concomitant]
  6. METOPROLOL SUCCINATE [Concomitant]
  7. LASIX [Concomitant]
  8. GLYBURIDE [Concomitant]
  9. SYNTHROID [Concomitant]
  10. PREVACID [Concomitant]
  11. BENADRYL [Concomitant]
  12. FENTANYL [Concomitant]
  13. LACTULOSE [Concomitant]
  14. MEGACE [Concomitant]
  15. DEMECLOCYCLINE [Concomitant]
  16. RESTORIL [Concomitant]
  17. LOVENOX [Concomitant]
  18. NOVOLIN R [Concomitant]
  19. DECADRON [Concomitant]
  20. LEVAQUIN [Concomitant]
  21. ROCEPHIN [Concomitant]
  22. ASTRAMORPH PF [Concomitant]
  23. ASPIRIN [Concomitant]
  24. ALBUTEROL SULATE [Concomitant]
  25. ATROVENT [Concomitant]
  26. COLACE [Concomitant]
  27. DULCOLAX [Concomitant]
  28. FLEET ENEMA [Concomitant]
  29. PREDNISONE TAB [Concomitant]
  30. SENOKOT [Concomitant]
  31. PHENERGAN HCL [Concomitant]
  32. POTASSIUM CHLORIDE [Concomitant]
  33. PERCOCET [Concomitant]
  34. MAGNESIUM SULFATE [Concomitant]
  35. TYLENOL (CAPLET) [Concomitant]

REACTIONS (30)
  - AORTIC VALVE INCOMPETENCE [None]
  - BLOOD PRESSURE DIASTOLIC DECREASED [None]
  - BLOOD UREA INCREASED [None]
  - CARDIAC FAILURE CONGESTIVE [None]
  - CARDIOMEGALY [None]
  - CONGESTIVE CARDIOMYOPATHY [None]
  - DILATATION ATRIAL [None]
  - DISEASE PROGRESSION [None]
  - EJECTION FRACTION DECREASED [None]
  - ELECTROCARDIOGRAM QT PROLONGED [None]
  - ELECTROCARDIOGRAM ST SEGMENT ABNORMAL [None]
  - ELECTROCARDIOGRAM T WAVE ABNORMAL [None]
  - GASTRITIS EROSIVE [None]
  - GASTROINTESTINAL HAEMORRHAGE [None]
  - HAEMOGLOBIN DECREASED [None]
  - HYPONATRAEMIA [None]
  - LUNG INFILTRATION [None]
  - MITRAL VALVE INCOMPETENCE [None]
  - PAIN [None]
  - PERICARDIAL EFFUSION [None]
  - PLATELET COUNT INCREASED [None]
  - PULMONARY CONGESTION [None]
  - PULMONARY HYPERTENSION [None]
  - PULMONARY VALVE INCOMPETENCE [None]
  - QRS AXIS ABNORMAL [None]
  - RESPIRATORY FAILURE [None]
  - RESPIRATORY RATE INCREASED [None]
  - SINUS TACHYCARDIA [None]
  - TRICUSPID VALVE INCOMPETENCE [None]
  - VENTRICULAR DYSFUNCTION [None]
